FAERS Safety Report 23100662 (Version 1)
Quarter: 2023Q4

REPORT INFORMATION
  Report Type: Spontaneous
  Country: JP (occurrence: JP)
  Receive Date: 20231024
  Receipt Date: 20231024
  Transmission Date: 20240110
  Serious: Yes (Other)
  Sender: FDA-Public Use
  Company Number: JP-PFIZER INC-PV202300173781

PATIENT
  Age: 6 Decade
  Sex: Female

DRUGS (1)
  1. LORBRENA [Suspect]
     Active Substance: LORLATINIB
     Route: 048

REACTIONS (2)
  - Mental disorder [Recovered/Resolved]
  - Cognitive disorder [Recovered/Resolved]
